FAERS Safety Report 6379825-1 (Version None)
Quarter: 2009Q3

REPORT INFORMATION
  Report Type: 
  Country: None (occurrence: None)
  Receive Date: 20090924
  Receipt Date: 20090825
  Transmission Date: 20100115
  Serious: Yes (Other)
  Sender: FDA-Public Use
  Company Number: 8050395

PATIENT
  Sex: Female

DRUGS (3)
  1. XYZAL [Suspect]
     Indication: DERMATITIS ATOPIC
     Dosage: 5 MG /D PO
     Route: 048
  2. XYZAL [Suspect]
     Indication: PRURITUS
     Dosage: 5 MG /D PO
     Route: 048
  3. XYZAL [Suspect]
     Indication: RHINITIS ALLERGIC
     Dosage: 5 MG /D PO
     Route: 048

REACTIONS (1)
  - SYNCOPE [None]
